FAERS Safety Report 6924574-1 (Version None)
Quarter: 2010Q3

REPORT INFORMATION
  Report Type: 
  Country: None (occurrence: None)
  Receive Date: 20100816
  Receipt Date: 20100805
  Transmission Date: 20110219
  Serious: Yes (Other)
  Sender: FDA-Public Use
  Company Number: CH-ASTRAZENECA-2010SE38038

PATIENT
  Age: 15 Year
  Sex: Male

DRUGS (2)
  1. SEROQUEL [Suspect]
     Indication: AUTISM
     Route: 048
     Dates: start: 20080401, end: 20090622
  2. LORAZEPAM [Concomitant]

REACTIONS (2)
  - LEUKOPENIA [None]
  - NEUTROPENIA [None]
